FAERS Safety Report 13752610 (Version 1)
Quarter: 2017Q3

REPORT INFORMATION
  Report Type: Spontaneous
  Country: US (occurrence: US)
  Receive Date: 20170713
  Receipt Date: 20170713
  Transmission Date: 20171127
  Serious: Yes (Other)
  Sender: FDA-Public Use
  Company Number: None

PATIENT
  Age: 54 Year
  Sex: Male

DRUGS (6)
  1. RIBASPHERE [Concomitant]
     Active Substance: RIBAVIRIN
  2. XANAX [Concomitant]
     Active Substance: ALPRAZOLAM
  3. OXYCODONE [Concomitant]
     Active Substance: OXYCODONE
  4. FLONASE [Concomitant]
     Active Substance: FLUTICASONE PROPIONATE
  5. ZEPATIER [Suspect]
     Active Substance: ELBASVIR\GRAZOPREVIR
     Dosage: 50-100MG DAILY ORAL
     Route: 048
     Dates: start: 20170523
  6. SOVALDI [Concomitant]
     Active Substance: SOFOSBUVIR

REACTIONS (6)
  - Productive cough [None]
  - Exposure to communicable disease [None]
  - Fatigue [None]
  - Rash [None]
  - Lower respiratory tract infection [None]
  - Cough [None]

NARRATIVE: CASE EVENT DATE: 20170708
